FAERS Safety Report 19407747 (Version 1)
Quarter: 2021Q2

REPORT INFORMATION
  Report Type: Report from Study
  Country: FR (occurrence: FR)
  Receive Date: 20210611
  Receipt Date: 20210611
  Transmission Date: 20210717
  Serious: Yes (Hospitalization, Other)
  Sender: FDA-Public Use
  Company Number: FR-TAKEDA-FR201850543

PATIENT
  Age: 60 Year
  Sex: Male

DRUGS (20)
  1. TEDUGLUTIDE [Suspect]
     Active Substance: TEDUGLUTIDE
     Dosage: 3.2MILLIGRAM, (0.05MG/KG), QD
     Route: 065
     Dates: start: 20170609, end: 20181009
  2. TEDUGLUTIDE [Suspect]
     Active Substance: TEDUGLUTIDE
     Dosage: 3.2MILLIGRAM, (0.05MG/KG), QD
     Route: 065
     Dates: start: 20170609, end: 20181009
  3. INNOHEP [Concomitant]
     Active Substance: TINZAPARIN SODIUM
     Indication: PROPHYLAXIS
  4. PHOSPHONEUROS [Concomitant]
     Active Substance: CALCIUM PHOSPHATE, DIBASIC, ANHYDROUS\MAGNESIUM GLYCEROPHOSPHATE\PHOSPHORIC ACID\SODIUM PHOSPHATE, DIBASIC
     Indication: PROPHYLAXIS
     Dosage: 100 GTTS (DROPS), QD
     Route: 048
  5. TEDUGLUTIDE [Suspect]
     Active Substance: TEDUGLUTIDE
     Dosage: 3.2MILLIGRAM, (0.05MG/KG), QD
     Route: 065
     Dates: start: 20170609, end: 20181009
  6. PROMETHAZINE WITH CODEINE [Concomitant]
     Active Substance: CODEINE PHOSPHATE\PROMETHAZINE HYDROCHLORIDE
     Indication: PROPHYLAXIS
  7. SODIUM SELENITE [Concomitant]
     Active Substance: SODIUM SELENITE
     Indication: PROPHYLAXIS
     Dosage: 1.0 TABS, QD
     Route: 048
     Dates: start: 20180903
  8. LAROSCORBINE [Concomitant]
     Active Substance: ASCORBIC ACID
     Indication: PROPHYLAXIS
     Dosage: 1.0 GRAM, QD
     Route: 048
     Dates: start: 20180903
  9. TEDUGLUTIDE [Suspect]
     Active Substance: TEDUGLUTIDE
     Dosage: 3.6 MILLIGRAM, (0.05MG/KG), QD
     Route: 065
     Dates: start: 20160405, end: 20170608
  10. TEDUGLUTIDE [Suspect]
     Active Substance: TEDUGLUTIDE
     Dosage: 3.6 MILLIGRAM, (0.05MG/KG), QD
     Route: 065
     Dates: start: 20160405, end: 20170608
  11. NACL [Concomitant]
     Active Substance: SODIUM CHLORIDE
     Indication: PROPHYLAXIS
  12. TEDUGLUTIDE [Suspect]
     Active Substance: TEDUGLUTIDE
     Indication: SHORT-BOWEL SYNDROME
     Dosage: 3.6 MILLIGRAM (0.05 MG KG AND 7 DOSES PER WEEK)
     Route: 065
     Dates: start: 20160405
  13. TEDUGLUTIDE [Suspect]
     Active Substance: TEDUGLUTIDE
     Indication: SHORT-BOWEL SYNDROME
     Dosage: 3.6 MILLIGRAM (0.05 MG KG AND 7 DOSES PER WEEK)
     Route: 065
     Dates: start: 20160405
  14. SPASFON [Concomitant]
     Indication: PROPHYLAXIS
     Dosage: 1.0 TABS, PRN
     Route: 048
  15. TEDUGLUTIDE [Suspect]
     Active Substance: TEDUGLUTIDE
     Indication: SHORT-BOWEL SYNDROME
     Dosage: 3.6 MILLIGRAM (0.05 MG KG AND 7 DOSES PER WEEK)
     Route: 065
     Dates: start: 20160405
  16. TEDUGLUTIDE [Suspect]
     Active Substance: TEDUGLUTIDE
     Dosage: 3.6 MILLIGRAM, (0.05MG/KG), QD
     Route: 065
     Dates: start: 20160405, end: 20170608
  17. VITAMIN B12 [Concomitant]
     Active Substance: CYANOCOBALAMIN
     Indication: PROPHYLAXIS
  18. TEDUGLUTIDE [Suspect]
     Active Substance: TEDUGLUTIDE
     Indication: SHORT-BOWEL SYNDROME
     Dosage: 3.6 MILLIGRAM (0.05 MG KG AND 7 DOSES PER WEEK)
     Route: 065
     Dates: start: 20160405
  19. TEDUGLUTIDE [Suspect]
     Active Substance: TEDUGLUTIDE
     Dosage: 3.6 MILLIGRAM, (0.05MG/KG), QD
     Route: 065
     Dates: start: 20160405, end: 20170608
  20. TEDUGLUTIDE [Suspect]
     Active Substance: TEDUGLUTIDE
     Dosage: 3.2MILLIGRAM, (0.05MG/KG), QD
     Route: 065
     Dates: start: 20170609, end: 20181009

REACTIONS (2)
  - Pseudomonal sepsis [Recovered/Resolved]
  - Rectal haemorrhage [Recovered/Resolved]

NARRATIVE: CASE EVENT DATE: 20180419
